FAERS Safety Report 19867205 (Version 1)
Quarter: 2021Q3

REPORT INFORMATION
  Report Type: Spontaneous
  Country: US (occurrence: US)
  Receive Date: 20210922
  Receipt Date: 20210922
  Transmission Date: 20211014
  Serious: Yes (Other)
  Sender: FDA-Public Use
  Company Number: None

PATIENT
  Age: 75 Year
  Sex: Male
  Weight: 85.5 kg

DRUGS (15)
  1. OMEPRAZOLE. [Concomitant]
     Active Substance: OMEPRAZOLE
  2. TRIAMCINOLONE [Concomitant]
     Active Substance: TRIAMCINOLONE
  3. ONDANSETRON [Concomitant]
     Active Substance: ONDANSETRON
  4. CARVEDILOL. [Concomitant]
     Active Substance: CARVEDILOL
  5. AZELASTINE. [Concomitant]
     Active Substance: AZELASTINE HYDROCHLORIDE
  6. ATORVASTATIN [Concomitant]
     Active Substance: ATORVASTATIN
  7. LOVENOX [Concomitant]
     Active Substance: ENOXAPARIN SODIUM
  8. ASPIRIN. [Concomitant]
     Active Substance: ASPIRIN
  9. METFORMIN [Concomitant]
     Active Substance: METFORMIN HYDROCHLORIDE
  10. PREDNISONE. [Concomitant]
     Active Substance: PREDNISONE
  11. MYRBETRIZ [Concomitant]
  12. OLOPATADINE. [Concomitant]
     Active Substance: OLOPATADINE
  13. ABIRATERONE. [Suspect]
     Active Substance: ABIRATERONE ACETATE
     Indication: PROSTATE CANCER
     Route: 048
     Dates: start: 20210731
  14. CETIRIZINE [Concomitant]
     Active Substance: CETIRIZINE HYDROCHLORIDE
  15. LISINOPRIL. [Concomitant]
     Active Substance: LISINOPRIL

REACTIONS (1)
  - Weight increased [None]

NARRATIVE: CASE EVENT DATE: 20210922
